FAERS Safety Report 10048021 (Version 1)
Quarter: 2014Q1

REPORT INFORMATION
  Report Type: Report from Study
  Country: NL (occurrence: NL)
  Receive Date: 20140331
  Receipt Date: 20140331
  Transmission Date: 20141002
  Serious: Yes (Hospitalization)
  Sender: FDA-Public Use
  Company Number: NL-B.I. PHARMACEUTICALS,INC./RIDGEFIELD-2014-BI-13049NL

PATIENT
  Age: 81 Year
  Sex: Male
  Weight: 91 kg

DRUGS (11)
  1. SPIRIVA [Suspect]
     Indication: DYSPNOEA
     Dosage: 18 MCG
     Route: 065
     Dates: start: 20140113, end: 20140302
  2. SERETIDE [Concomitant]
     Dosage: DOSE PER APPLICATION: 25/50 MCG
     Route: 065
  3. COZAAR [Concomitant]
     Dosage: 50 MG
     Route: 065
  4. FUROSEMIDE [Concomitant]
     Dosage: 40 MG
     Route: 065
  5. BISOPROLOL [Concomitant]
     Dosage: 2.5 MG
     Route: 065
  6. LANOXIN [Concomitant]
     Dosage: 0.25 MG
     Route: 065
  7. ACENOCOUMAROL [Concomitant]
     Route: 065
  8. PRAVASTATINE [Concomitant]
     Dosage: 40 MG
     Route: 065
  9. COLCHICINE [Concomitant]
     Dosage: 1 MG
     Route: 065
  10. SPIRONOLACTON [Concomitant]
     Dosage: 25 MG
     Route: 065
  11. CLOBETASOL [Concomitant]
     Route: 065

REACTIONS (4)
  - Pruritus [Not Recovered/Not Resolved]
  - Purpura [Not Recovered/Not Resolved]
  - Malaise [Not Recovered/Not Resolved]
  - Erythema [Not Recovered/Not Resolved]
